FAERS Safety Report 4757210-3 (Version None)
Quarter: 2005Q3

REPORT INFORMATION
  Report Type: 
  Country: None (occurrence: None)
  Receive Date: 20050831
  Receipt Date: 20050803
  Transmission Date: 20060218
  Serious: Yes (Other)
  Sender: FDA-Public Use
  Company Number: PHBS2005JP11296

PATIENT
  Age: 8 Year
  Sex: Male

DRUGS (2)
  1. LIORESAL [Suspect]
     Dosage: 5 MG, BID
  2. LIORESAL [Suspect]
     Dosage: 5 MG TID

REACTIONS (1)
  - ABDOMINAL DISTENSION [None]
